FAERS Safety Report 7015008-X (Version None)
Quarter: 2010Q3

REPORT INFORMATION
  Report Type: 
  Country: None (occurrence: None)
  Receive Date: 20100927
  Receipt Date: 20091130
  Transmission Date: 20110219
  Serious: No
  Sender: FDA-Public Use
  Company Number: US-ASTRAZENECA-2009SE29590

PATIENT
  Age: 70 Year
  Sex: Female
  Weight: 59 kg

DRUGS (4)
  1. ARIMIDEX [Suspect]
     Indication: BREAST CANCER
     Route: 048
     Dates: start: 20070501
  2. DIOVAN [Concomitant]
  3. NORVASC [Concomitant]
  4. GENERIC XANAX [Concomitant]

REACTIONS (5)
  - ARTHRITIS [None]
  - COUGH [None]
  - FATIGUE [None]
  - GLAUCOMA [None]
  - PNEUMONIA [None]
